FAERS Safety Report 5677357-7 (Version None)
Quarter: 2008Q1

REPORT INFORMATION
  Report Type: 
  Country: None (occurrence: None)
  Receive Date: 20080320
  Receipt Date: 20080320
  Transmission Date: 20080703
  Serious: Yes (Life-Threatening, Hospitalization, Disabling)
  Sender: FDA-Public Use
  Company Number: None

PATIENT
  Age: 10 Year
  Sex: Male
  Weight: 24.5 kg

DRUGS (6)
  1. REMICADE [Suspect]
     Indication: CROHN'S DISEASE
     Dosage: 120 MG ONCE IV
     Route: 042
     Dates: start: 20080220, end: 20080220
  2. PREDNISOLONE [Concomitant]
  3. IBUPROFEN [Concomitant]
  4. FOSPHENYTOIN [Concomitant]
  5. VANCOMYCIN [Concomitant]
  6. MEROPENEM [Concomitant]

REACTIONS (2)
  - ALANINE AMINOTRANSFERASE INCREASED [None]
  - ASPARTATE AMINOTRANSFERASE INCREASED [None]
